FAERS Safety Report 13079280 (Version 1)
Quarter: 2017Q1

REPORT INFORMATION
  Report Type: Report from Study
  Country: None (occurrence: AR)
  Receive Date: 20170103
  Receipt Date: 20170103
  Transmission Date: 20170428
  Serious: Yes (Hospitalization)
  Sender: FDA-Public Use
  Company Number: AR-ABBVIE-17K-007-1827368-00

PATIENT
  Age: 77 Year
  Sex: Male

DRUGS (3)
  1. DOLIFLES [Concomitant]
     Indication: PRODUCT USED FOR UNKNOWN INDICATION
  2. ARTRAIT [Concomitant]
     Active Substance: METHOTREXATE SODIUM
     Indication: PRODUCT USED FOR UNKNOWN INDICATION
  3. HUMIRA [Suspect]
     Active Substance: ADALIMUMAB
     Indication: PSORIATIC ARTHROPATHY
     Route: 058
     Dates: start: 20120101, end: 20161004

REACTIONS (6)
  - Fall [Unknown]
  - Pain [Unknown]
  - Peripheral swelling [Unknown]
  - Tendon rupture [Not Recovered/Not Resolved]
  - Muscle atrophy [Unknown]
  - Fibrosis tendinous [Unknown]

NARRATIVE: CASE EVENT DATE: 20161015
